FAERS Safety Report 14290190 (Version 2)
Quarter: 2018Q1

REPORT INFORMATION
  Report Type: Spontaneous
  Country: DE (occurrence: DE)
  Receive Date: 20171215
  Receipt Date: 20180109
  Transmission Date: 20180509
  Serious: Yes (Death, Life-Threatening, Hospitalization, Other)
  Sender: FDA-Public Use
  Company Number: PHHY2017DE182937

PATIENT
  Age: 35 Year
  Sex: Male

DRUGS (6)
  1. TAFINLAR [Suspect]
     Active Substance: DABRAFENIB MESYLATE
     Dosage: 75 MG, BID
     Route: 065
     Dates: start: 20150805, end: 201601
  2. VEMURAFENIB. [Concomitant]
     Active Substance: VEMURAFENIB
     Indication: METASTATIC MALIGNANT MELANOMA
     Dosage: 960 MG, QD
     Route: 065
     Dates: start: 201601
  3. TAFINLAR [Suspect]
     Active Substance: DABRAFENIB MESYLATE
     Indication: METASTATIC MALIGNANT MELANOMA
     Dosage: 150 MG, BID
     Route: 065
     Dates: start: 201503, end: 20150805
  4. NIVOLUMAB [Concomitant]
     Active Substance: NIVOLUMAB
     Indication: METASTATIC MALIGNANT MELANOMA
     Dosage: 3 MG/KG, UNK (PER BODY WEIGHT)
     Route: 065
     Dates: start: 20150805, end: 201601
  5. TRAMETINIB [Suspect]
     Active Substance: TRAMETINIB
     Indication: METASTATIC MALIGNANT MELANOMA
     Dosage: 2 MG, QD
     Route: 065
     Dates: start: 201503, end: 20150526
  6. COBIMETINIB. [Concomitant]
     Active Substance: COBIMETINIB
     Indication: METASTATIC MALIGNANT MELANOMA
     Dosage: 60 MG, QD
     Route: 065
     Dates: start: 201601

REACTIONS (17)
  - Photophobia [Recovered/Resolved]
  - Metastases to lymph nodes [Fatal]
  - Cerebral haemorrhage [Unknown]
  - Chorioretinopathy [Recovered/Resolved]
  - Metastases to central nervous system [Unknown]
  - Blood lactate dehydrogenase increased [Unknown]
  - Malignant neoplasm progression [Fatal]
  - Metastases to spleen [Fatal]
  - Folliculitis [Recovered/Resolved]
  - Metastatic malignant melanoma [Fatal]
  - Metastases to liver [Fatal]
  - Retinal detachment [Recovered/Resolved]
  - Metastases to bone marrow [Fatal]
  - Vision blurred [Recovered/Resolved]
  - Bone pain [Unknown]
  - Off label use [Unknown]
  - Metastases to lung [Fatal]

NARRATIVE: CASE EVENT DATE: 201504
